FAERS Safety Report 13377575 (Version 1)
Quarter: 2017Q1

REPORT INFORMATION
  Report Type: Report from Study
  Country: None (occurrence: BR)
  Receive Date: 20170328
  Receipt Date: 20170328
  Transmission Date: 20170429
  Serious: Yes (Hospitalization, Other)
  Sender: FDA-Public Use
  Company Number: BR-ABBVIE-15K-020-1516000-00

PATIENT
  Sex: Female
  Weight: 74 kg

DRUGS (4)
  1. HYDROCHLOROTHIAZIDE. [Concomitant]
     Active Substance: HYDROCHLOROTHIAZIDE
     Indication: BLOOD PRESSURE ABNORMAL
     Route: 048
  2. LOSARTAN. [Concomitant]
     Active Substance: LOSARTAN
     Indication: BLOOD PRESSURE ABNORMAL
     Route: 048
  3. HUMIRA [Suspect]
     Active Substance: ADALIMUMAB
     Indication: ANKYLOSING SPONDYLITIS
     Route: 058
     Dates: start: 20121209
  4. AMLODIPINE [Concomitant]
     Active Substance: AMLODIPINE BESYLATE
     Indication: BLOOD PRESSURE ABNORMAL
     Route: 048
     Dates: start: 2011

REACTIONS (14)
  - Anaemia [Recovering/Resolving]
  - Pruritus [Unknown]
  - Ophthalmic herpes zoster [Recovered/Resolved]
  - Uterine haemorrhage [Recovered/Resolved]
  - Anxiety [Recovering/Resolving]
  - Haemoglobin decreased [Recovered/Resolved]
  - Emotional disorder [Unknown]
  - Blood iron decreased [Unknown]
  - Rash vesicular [Unknown]
  - Anaemia [Recovered/Resolved]
  - Nervousness [Not Recovered/Not Resolved]
  - Menorrhagia [Recovered/Resolved]
  - Urticaria [Recovering/Resolving]
  - Wound [Unknown]

NARRATIVE: CASE EVENT DATE: 2013
